FAERS Safety Report 19404998 (Version 4)
Quarter: 2021Q2

REPORT INFORMATION
  Report Type: Spontaneous
  Country: US (occurrence: US)
  Receive Date: 20210611
  Receipt Date: 20210628
  Transmission Date: 20210717
  Serious: Yes (Other)
  Sender: FDA-Public Use
  Company Number: US-AMGEN-USASP2021089228

PATIENT
  Age: 49 Year
  Sex: Female

DRUGS (2)
  1. ENBREL [Suspect]
     Active Substance: ETANERCEPT
     Indication: ANKYLOSING SPONDYLITIS
     Dosage: UNK
     Route: 065
     Dates: end: 2021
  2. ENBREL [Suspect]
     Active Substance: ETANERCEPT
     Dosage: UNK
     Route: 065

REACTIONS (10)
  - Appendicectomy [Unknown]
  - Accidental exposure to product [Unknown]
  - COVID-19 [Unknown]
  - Pulmonary thrombosis [Unknown]
  - Device mechanical issue [Unknown]
  - Pain [Unknown]
  - Injection site urticaria [Unknown]
  - Injection site discomfort [Unknown]
  - Thrombosis [Recovered/Resolved]
  - Surgery [Unknown]

NARRATIVE: CASE EVENT DATE: 2021
